FAERS Safety Report 24322729 (Version 1)
Quarter: 2024Q3

REPORT INFORMATION
  Report Type: Spontaneous
  Country: US (occurrence: US)
  Receive Date: 20240916
  Receipt Date: 20240916
  Transmission Date: 20241017
  Serious: Yes (Hospitalization)
  Sender: STRIDES
  Company Number: US-STRIDES ARCOLAB LIMITED-2024SP011659

PATIENT
  Age: 10 Year
  Sex: Male
  Weight: 68 kg

DRUGS (4)
  1. DOXEPIN HYDROCHLORIDE [Suspect]
     Active Substance: DOXEPIN HYDROCHLORIDE
     Indication: Insomnia
     Dosage: 75 MILLIGRAM, AT BED TIME (1.10 MG/KG)
     Route: 065
     Dates: start: 20210108
  2. DOXEPIN HYDROCHLORIDE [Suspect]
     Active Substance: DOXEPIN HYDROCHLORIDE
     Dosage: 150 MILLIGRAM, AT BED TIME (2.21 MG/KG)
     Route: 065
     Dates: start: 20210623
  3. DOXEPIN HYDROCHLORIDE [Suspect]
     Active Substance: DOXEPIN HYDROCHLORIDE
     Dosage: 200 MILLIGRAM, AT BED TIME (2.94 MG/KG)
     Route: 065
     Dates: start: 20211023
  4. DOXEPIN HYDROCHLORIDE [Suspect]
     Active Substance: DOXEPIN HYDROCHLORIDE
     Dosage: 300 MILLIGRAM, AT BED TIME (4.41 MG/KG)
     Route: 065
     Dates: start: 20220407, end: 202204

REACTIONS (6)
  - Generalised tonic-clonic seizure [Recovered/Resolved]
  - Withdrawal syndrome [Unknown]
  - Confusional state [Unknown]
  - Cognitive disorder [Unknown]
  - Electrocardiogram QRS complex prolonged [Recovered/Resolved]
  - Toxicity to various agents [Unknown]

NARRATIVE: CASE EVENT DATE: 20210915
